FAERS Safety Report 6542417-5 (Version None)
Quarter: 2010Q1

REPORT INFORMATION
  Report Type: 
  Country: None (occurrence: None)
  Receive Date: 20100114
  Receipt Date: 20100114
  Transmission Date: 20100710
  Serious: Yes (Other)
  Sender: FDA-Public Use
  Company Number: None

PATIENT
  Age: 46 Year
  Sex: Female
  Weight: 79.3795 kg

DRUGS (1)
  1. ZICAM UNKNOWN ZICAM [Suspect]
     Indication: NASOPHARYNGITIS
     Dosage: AS DESCRIBED ON LABEL NASAL
     Route: 045
     Dates: start: 20041210, end: 20041219

REACTIONS (1)
  - HYPOSMIA [None]
